FAERS Safety Report 10695457 (Version 1)
Quarter: 2015Q1

REPORT INFORMATION
  Report Type: Spontaneous
  Country: ES (occurrence: None)
  Receive Date: 20150105
  Receipt Date: 20150105
  Transmission Date: 20150721
  Serious: Yes (Death, Hospitalization, Other)
  Sender: FDA-Public Use
  Company Number: AXC-2014-000795

PATIENT

DRUGS (5)
  1. CIMETIDINE. [Suspect]
     Active Substance: CIMETIDINE
     Indication: GASTROINTESTINAL HAEMORRHAGE
     Dosage: 400 MG, QD, UKNOWN
     Dates: start: 198512
  2. SUCRALFATE (SUCRALFATE) UNKNOWN [Suspect]
     Active Substance: SUCRALFATE
     Indication: GASTROINTESTINAL HAEMORRHAGE
  3. PHENYTOIN(PHENYTOIN) [Concomitant]
     Active Substance: PHENYTOIN
  4. PHENOBARBITAL(PHENOBARBITAL) [Concomitant]
  5. ALUMINIUM HYDROXIDE [Suspect]
     Active Substance: ALUMINUM HYDROXIDE
     Indication: GASTROINTESTINAL HAEMORRHAGE
     Route: 048
     Dates: start: 198512

REACTIONS (16)
  - Confusional state [None]
  - Coma [None]
  - Parotitis [None]
  - Dysarthria [None]
  - Myoclonus [None]
  - Toxicity to various agents [None]
  - Disorientation [None]
  - Pseudomonas test positive [None]
  - Toxic encephalopathy [None]
  - Agitation [None]
  - Lethargy [None]
  - Encephalopathy [None]
  - Septic shock [None]
  - Generalised tonic-clonic seizure [None]
  - Hyperreflexia [None]
  - Drug ineffective [None]
